FAERS Safety Report 21190876 (Version 3)
Quarter: 2022Q4

REPORT INFORMATION
  Report Type: Report from Study
  Country: FR (occurrence: None)
  Receive Date: 20220809
  Receipt Date: 20221207
  Transmission Date: 20230112
  Serious: Yes (Hospitalization)
  Sender: FDA-Public Use
  Company Number: FR-ROCHE-3138221

PATIENT
  Age: 67 Year
  Sex: Female
  Weight: 58 kg

DRUGS (14)
  1. RUNIMOTAMAB [Suspect]
     Active Substance: RUNIMOTAMAB
     Indication: Breast cancer metastatic
     Dosage: DATE OF LAST DOSE PRIOR TO AE:18-JUL-2022 2:57 PM?DOSE LAST STUDY DRUG ADMIN PRIOR AE 135 MG
     Route: 042
     Dates: start: 20220706
  2. TRASTUZUMAB [Suspect]
     Active Substance: TRASTUZUMAB
     Indication: Breast cancer metastatic
     Dosage: START DATE OF MOST RECENT DOSE OF STUDY DRUG PRIOR TO AE 05-JUL-2022 11:35 AM?DOSE LAST STUDY DRUG A
     Route: 041
     Dates: start: 20220705
  3. SODIUM CHLORIDE [Concomitant]
     Active Substance: SODIUM CHLORIDE
     Dates: start: 20220707, end: 20220707
  4. PACLITAXEL [Concomitant]
     Active Substance: PACLITAXEL
     Indication: Neoplasm malignant
  5. VINORELBINE [Concomitant]
     Active Substance: VINORELBINE TARTRATE
     Indication: Neoplasm malignant
  6. GEMCITABINE [Concomitant]
     Active Substance: GEMCITABINE
     Indication: Neoplasm malignant
  7. TRASTUZUMAB [Concomitant]
     Active Substance: TRASTUZUMAB
     Indication: Neoplasm malignant
     Route: 065
  8. PERTUZUMAB [Concomitant]
     Active Substance: PERTUZUMAB
     Indication: Neoplasm malignant
  9. IXPRIM [Concomitant]
     Active Substance: ACETAMINOPHEN\TRAMADOL HYDROCHLORIDE
     Indication: Tumour pain
     Route: 048
     Dates: start: 20220621
  10. IXPRIM [Concomitant]
     Active Substance: ACETAMINOPHEN\TRAMADOL HYDROCHLORIDE
     Indication: Peripheral sensory neuropathy
  11. DIOSMIN [Concomitant]
     Active Substance: DIOSMIN
     Indication: Peripheral venous disease
     Route: 048
     Dates: start: 2022
  12. FISH OIL [Concomitant]
     Active Substance: FISH OIL
     Indication: Prophylaxis
     Dosage: 1 AMPULE
     Route: 048
     Dates: start: 2022
  13. DIETARY SUPPLEMENT\HERBALS\MILK THISTLE [Concomitant]
     Active Substance: DIETARY SUPPLEMENT\HERBALS\MILK THISTLE
     Route: 048
     Dates: start: 2022
  14. TINZAPARIN [Concomitant]
     Active Substance: TINZAPARIN
     Indication: Deep vein thrombosis
     Dosage: 10000 IU
     Route: 058
     Dates: start: 2022

REACTIONS (1)
  - Cytokine release syndrome [Recovered/Resolved]

NARRATIVE: CASE EVENT DATE: 20220707
